FAERS Safety Report 6963376-7 (Version None)
Quarter: 2010Q3

REPORT INFORMATION
  Report Type: 
  Country: None (occurrence: None)
  Receive Date: 20100902
  Receipt Date: 20100827
  Transmission Date: 20110219
  Serious: Yes (Other)
  Sender: FDA-Public Use
  Company Number: A0878123A

PATIENT
  Age: 56 Year
  Sex: Female

DRUGS (13)
  1. REQUIP [Suspect]
     Indication: RESTLESS LEGS SYNDROME
     Dosage: 1MG AT NIGHT
     Route: 048
     Dates: start: 20100702
  2. ROPINIROLE [Suspect]
     Indication: RESTLESS LEGS SYNDROME
     Dosage: .5MG AT NIGHT
     Route: 048
     Dates: start: 20080101
  3. AVANDIA [Suspect]
     Route: 048
     Dates: start: 20040101, end: 20040101
  4. METFORMIN [Concomitant]
  5. LORCET-HD [Concomitant]
  6. AMBIEN [Concomitant]
  7. NEXIUM [Concomitant]
  8. NORVASC [Concomitant]
  9. ACCUPRIL [Concomitant]
  10. XANAX [Concomitant]
  11. FLEXERIL [Concomitant]
  12. ULTRAM [Concomitant]
  13. NAPROSYN [Concomitant]

REACTIONS (4)
  - BLOOD AMYLASE INCREASED [None]
  - DRUG INEFFECTIVE [None]
  - MUSCULOSKELETAL DISORDER [None]
  - PANCREATITIS [None]
